FAERS Safety Report 8247443-6 (Version None)
Quarter: 2012Q1

REPORT INFORMATION
  Report Type: 
  Country: None (occurrence: None)
  Receive Date: 20120316
  Receipt Date: 20081028
  Transmission Date: 20120608
  Serious: Yes (Life-Threatening)
  Sender: FDA-Public Use
  Company Number: PHEH2008US09771

PATIENT
  Age: 61 Year
  Sex: Female
  Weight: 84.4 kg

DRUGS (1)
  1. TEKTURNA [Suspect]
     Dosage: 150 MG, QD

REACTIONS (1)
  - ANGIOEDEMA [None]
